FAERS Safety Report 6876186-6 (Version None)
Quarter: 2010Q3

REPORT INFORMATION
  Report Type: 
  Country: None (occurrence: None)
  Receive Date: 20100727
  Receipt Date: 20100708
  Transmission Date: 20110219
  Serious: Yes (Hospitalization)
  Sender: FDA-Public Use
  Company Number: A0866638A

PATIENT
  Age: 54 Year
  Sex: Male
  Weight: 91.8 kg

DRUGS (6)
  1. AVANDARYL [Suspect]
     Dosage: 1TAB TWICE PER DAY
     Dates: start: 20060201, end: 20070413
  2. AVANDIA [Suspect]
     Dosage: 4MG TWICE PER DAY
     Route: 048
  3. FORTAMET [Concomitant]
  4. AMARYL [Concomitant]
  5. METOPROLOL SUCCINATE [Concomitant]
  6. LANTUS [Concomitant]

REACTIONS (3)
  - ACUTE CORONARY SYNDROME [None]
  - ANGINA UNSTABLE [None]
  - CARDIAC FAILURE CONGESTIVE [None]
